FAERS Safety Report 5358777-7 (Version None)
Quarter: 2007Q2

REPORT INFORMATION
  Report Type: 
  Country: None (occurrence: None)
  Receive Date: 20070615
  Receipt Date: 20070611
  Transmission Date: 20071010
  Serious: Yes (Hospitalization)
  Sender: FDA-Public Use
  Company Number: CA-AVENTIS-200415329GDDC

PATIENT
  Age: 59 Year
  Sex: Female
  Weight: 133.1 kg

DRUGS (15)
  1. HUMULIN N [Suspect]
     Indication: DIABETES MELLITUS
     Route: 058
     Dates: start: 20020318
  2. KETEK [Suspect]
     Indication: BRONCHITIS
     Route: 048
     Dates: start: 20040511, end: 20040516
  3. KETEK [Suspect]
     Indication: EAR INFECTION
     Route: 048
     Dates: start: 20040511, end: 20040516
  4. ALTACE [Concomitant]
     Indication: HYPERTENSION
     Route: 048
     Dates: start: 20020720, end: 20020802
  5. ALTACE [Concomitant]
     Route: 048
     Dates: start: 20020803
  6. SERAX                              /00040901/ [Concomitant]
     Indication: INSOMNIA
     Route: 048
     Dates: start: 20031215
  7. TYLENOL [Concomitant]
     Route: 048
     Dates: start: 20030305
  8. CRESTOR [Concomitant]
     Route: 048
     Dates: start: 20030924
  9. COZAAR [Concomitant]
     Indication: HYPERTENSION
     Route: 048
     Dates: start: 19950101
  10. LOSEC                              /00661201/ [Concomitant]
     Route: 048
     Dates: start: 20010829
  11. XALATAN [Concomitant]
     Indication: GLAUCOMA
     Dosage: DOSE: 1 DROP
     Route: 048
     Dates: start: 20011001
  12. CORGARD [Concomitant]
     Indication: HYPERTENSION
     Route: 048
     Dates: start: 19990101
  13. UREMOL [Concomitant]
     Indication: DRY SKIN
     Dosage: DOSE QUANTITY: 1
     Route: 061
     Dates: start: 20020320, end: 20020620
  14. MOTILIUM [Concomitant]
     Indication: NAUSEA
     Route: 048
     Dates: start: 20011001
  15. HYDRODIURIL [Concomitant]
     Indication: HYPERTENSION
     Route: 048
     Dates: start: 20040220

REACTIONS (4)
  - ARRHYTHMIA [None]
  - BLOOD PRESSURE INADEQUATELY CONTROLLED [None]
  - BRADYCARDIA [None]
  - FATIGUE [None]
